FAERS Safety Report 8167511-7 (Version None)
Quarter: 2012Q1

REPORT INFORMATION
  Report Type: 
  Country: None (occurrence: None)
  Receive Date: 20120227
  Receipt Date: 20120217
  Transmission Date: 20120608
  Serious: Yes (Hospitalization, Other)
  Sender: FDA-Public Use
  Company Number: US-ABBOTT-12P-163-0906270-00

PATIENT
  Age: 64 Year
  Sex: Female

DRUGS (15)
  1. LYRICA [Concomitant]
     Indication: PAIN
     Dosage: DAILY
  2. NADOLOL [Concomitant]
     Indication: HYPERTENSION
     Dosage: DAILY
  3. AMITRIPTYLINE HCL [Concomitant]
     Indication: PRODUCT USED FOR UNKNOWN INDICATION
     Dosage: AT NIGHT
  4. PRED FORTE [Concomitant]
     Indication: PRODUCT USED FOR UNKNOWN INDICATION
  5. DOXYCYCLINE [Concomitant]
     Indication: EYE DISORDER
  6. PLAQUENIL [Concomitant]
     Indication: SJOGREN'S SYNDROME
     Dosage: DAILY
  7. PREDNISONE [Concomitant]
     Indication: PRODUCT USED FOR UNKNOWN INDICATION
     Dosage: DAILY
  8. HUMIRA [Suspect]
     Indication: RHEUMATOID ARTHRITIS
     Dates: start: 20110701, end: 20111203
  9. AZASITE [Concomitant]
     Indication: EYE DISORDER
  10. LOTEMAX [Concomitant]
     Indication: PRODUCT USED FOR UNKNOWN INDICATION
  11. RESTORIL [Concomitant]
     Indication: INSOMNIA
  12. VIGAMOX [Concomitant]
     Indication: PRODUCT USED FOR UNKNOWN INDICATION
  13. TRAVATAN [Concomitant]
     Indication: PRODUCT USED FOR UNKNOWN INDICATION
  14. HUMIRA [Suspect]
     Dates: start: 20120117
  15. VITAMIN TAB [Concomitant]
     Indication: PRODUCT USED FOR UNKNOWN INDICATION

REACTIONS (10)
  - RESPIRATORY TRACT CONGESTION [None]
  - NASOPHARYNGITIS [None]
  - RHINORRHOEA [None]
  - KIDNEY INFECTION [None]
  - SINUS CONGESTION [None]
  - INTRAOCULAR PRESSURE INCREASED [None]
  - SNEEZING [None]
  - COUGH [None]
  - PYREXIA [None]
  - KERATORHEXIS [None]
